FAERS Safety Report 7204383-9 (Version None)
Quarter: 2010Q4

REPORT INFORMATION
  Report Type: 
  Country: None (occurrence: None)
  Receive Date: 20101230
  Receipt Date: 20101229
  Transmission Date: 20110411
  Serious: Yes (Hospitalization)
  Sender: FDA-Public Use
  Company Number: CO-ROCHE-750786

PATIENT
  Sex: Male

DRUGS (4)
  1. ACTEMRA [Suspect]
     Indication: RHEUMATOID ARTHRITIS
     Dosage: FREQUENCY REPORTED EVERY 28 DAYS
     Route: 042
     Dates: start: 20100830, end: 20101123
  2. METHOTREXATE [Concomitant]
     Indication: RHEUMATOID ARTHRITIS
     Route: 048
  3. PREDNISOLONE [Concomitant]
     Indication: RHEUMATOID ARTHRITIS
     Dosage: FREQUENCY REPROTED: QD
     Route: 048
  4. FOLIC ACID [Concomitant]
     Indication: RHEUMATOID ARTHRITIS
     Dosage: FREQUENCY REPORTED: QD
     Route: 048

REACTIONS (2)
  - ARRHYTHMIA [None]
  - PNEUMONIA [None]
